FAERS Safety Report 7755631-8 (Version None)
Quarter: 2011Q3

REPORT INFORMATION
  Report Type: 
  Country: None (occurrence: None)
  Receive Date: 20110916
  Receipt Date: 20110913
  Transmission Date: 20111222
  Serious: No
  Sender: FDA-Public Use
  Company Number: US-PFIZER INC-2011201370

PATIENT
  Sex: Male
  Weight: 88.435 kg

DRUGS (6)
  1. TRAVATAN [Concomitant]
     Indication: INTRAOCULAR PRESSURE TEST ABNORMAL
     Dosage: 1 GTT IN EACH EYE, DAILY
  2. EPLERENONE [Suspect]
     Indication: ADRENAL NEOPLASM
     Dosage: UNK
     Dates: end: 20110801
  3. COREG CR [Concomitant]
     Indication: BLOOD PRESSURE ABNORMAL
     Dosage: 12.5 MG, 3X/DAY
  4. INSPRA [Suspect]
     Indication: ADRENAL NEOPLASM
     Dosage: 50 MG, 4X/DAY
     Route: 048
  5. GEMFIBROZIL [Concomitant]
     Indication: BLOOD CHOLESTEROL ABNORMAL
     Dosage: 600 MG, 2X/DAY
  6. AVAPRO [Concomitant]
     Indication: BLOOD PRESSURE ABNORMAL
     Dosage: 300 MG, DAILY

REACTIONS (1)
  - BLOOD PRESSURE INCREASED [None]
